FAERS Safety Report 16128734 (Version 1)
Quarter: 2019Q1

REPORT INFORMATION
  Report Type: Spontaneous
  Country: US (occurrence: US)
  Receive Date: 20190328
  Receipt Date: 20190328
  Transmission Date: 20190418
  Serious: No
  Sender: FDA-Public Use
  Company Number: US-PURACAP PHARMACEUTICAL LLC-2019EPC00033

PATIENT
  Age: 85 Year
  Sex: Female
  Weight: 65.76 kg

DRUGS (1)
  1. IBUPROFEN. [Suspect]
     Active Substance: IBUPROFEN
     Indication: SPINAL PAIN
     Dosage: 200 MG, 4X/DAY
     Route: 048
     Dates: start: 20190129

REACTIONS (4)
  - Drug ineffective [Not Recovered/Not Resolved]
  - Pain in jaw [Not Recovered/Not Resolved]
  - Infection [Not Recovered/Not Resolved]
  - Swelling [Not Recovered/Not Resolved]

NARRATIVE: CASE EVENT DATE: 20190129
